FAERS Safety Report 7212706-X (Version None)
Quarter: 2011Q1

REPORT INFORMATION
  Report Type: 
  Country: None (occurrence: None)
  Receive Date: 20110106
  Receipt Date: 20101230
  Transmission Date: 20110831
  Serious: Yes (Hospitalization)
  Sender: FDA-Public Use
  Company Number: US-JNJFOC-20100308381

PATIENT
  Sex: Male
  Weight: 47.99 kg

DRUGS (5)
  1. INFLIXIMAB [Suspect]
     Indication: CROHN'S DISEASE
     Route: 042
  2. MERCAPTOPURINE [Concomitant]
  3. THALIDOMIDE [Concomitant]
  4. ACETAMINOPHEN [Concomitant]
  5. MAALOX [Concomitant]

REACTIONS (1)
  - MALNUTRITION [None]
